FAERS Safety Report 8453698-5 (Version None)
Quarter: 2012Q2

REPORT INFORMATION
  Report Type: 
  Country: None (occurrence: None)
  Receive Date: 20120620
  Receipt Date: 20120607
  Transmission Date: 20120825
  Serious: Yes (Hospitalization)
  Sender: FDA-Public Use
  Company Number: US-ACTELION-A-US2012-65531

PATIENT

DRUGS (2)
  1. TRACLEER [Suspect]
     Indication: PULMONARY ARTERIAL HYPERTENSION
     Dosage: UNK
     Route: 048
     Dates: start: 20110801
  2. CALCIUM CHANNEL BLOCKERS [Concomitant]

REACTIONS (3)
  - HYPERTENSION [None]
  - BLOOD POTASSIUM INCREASED [None]
  - RENAL DISORDER [None]
